FAERS Safety Report 22759511 (Version 4)
Quarter: 2024Q1

REPORT INFORMATION
  Report Type: Spontaneous
  Country: US (occurrence: US)
  Receive Date: 20230728
  Receipt Date: 20240115
  Transmission Date: 20240410
  Serious: No
  Sender: FDA-Public Use
  Company Number: US-BRISTOL-MYERS SQUIBB COMPANY-2023-106066

PATIENT
  Age: 54 Year
  Sex: Male
  Weight: 128.82 kg

DRUGS (1)
  1. POMALYST [Suspect]
     Active Substance: POMALIDOMIDE
     Indication: Plasma cell myeloma
     Dosage: FREQUENCY: 3WKSON,1WKOFF
     Route: 048

REACTIONS (5)
  - Weight increased [Unknown]
  - Dyspnoea [Recovering/Resolving]
  - Chest discomfort [Unknown]
  - COVID-19 [Unknown]
  - Back pain [Not Recovered/Not Resolved]
